FAERS Safety Report 9628275 (Version 1)
Quarter: 2013Q4

REPORT INFORMATION
  Report Type: Spontaneous
  Country: US (occurrence: GB)
  Receive Date: 20131017
  Receipt Date: 20131017
  Transmission Date: 20140711
  Serious: Yes (Other)
  Sender: FDA-Public Use
  Company Number: 2013SP007243

PATIENT
  Age: 71 Year
  Sex: Male

DRUGS (29)
  1. VANCOMYCIN [Suspect]
     Indication: ENDOCARDITIS BACTERIAL
     Route: 042
     Dates: start: 20130810
  2. VANCOMYCIN [Suspect]
     Indication: ENDOCARDITIS BACTERIAL
     Route: 042
  3. VANCOMYCIN [Suspect]
     Indication: ENDOCARDITIS BACTERIAL
     Route: 042
     Dates: end: 20130901
  4. MEROPENEM [Suspect]
     Indication: ENDOCARDITIS BACTERIAL
     Route: 042
     Dates: start: 20130814, end: 20130901
  5. PARACETAMOL [Concomitant]
     Indication: PAIN
     Dates: start: 20130802
  6. ASCORBIC ACID [Concomitant]
     Dates: start: 20130802, end: 20130813
  7. NICOTINAMIDE [Concomitant]
     Dates: start: 20130802, end: 20130813
  8. PYRIDOXINE HYDROCHLORIDE [Concomitant]
     Dates: start: 20130802, end: 20130813
  9. RIBOFLAVIN SODIUM PHOSPHATE [Concomitant]
     Dates: start: 20130802, end: 20130813
  10. THIAMINE HYDROCHLORIDE [Concomitant]
     Dates: start: 20130802, end: 20130813
  11. PIPERACILLIN/TAZOBACTAM [Concomitant]
     Indication: PNEUMONIA ASPIRATION
     Dates: start: 20130802, end: 20130813
  12. ENOXAPARIN [Concomitant]
     Dates: start: 20130802, end: 20130903
  13. SODIUM CHLORIDE [Concomitant]
     Dates: start: 20130802
  14. SALBUTAMOL [Concomitant]
     Dates: start: 20130904
  15. GENTAMICIN [Concomitant]
     Indication: PNEUMONIA ASPIRATION
     Dates: start: 20130805, end: 20130806
  16. AMLODIPINE [Concomitant]
     Indication: HYPERTENSION
     Dates: start: 20130806
  17. METRONIDAZOLE [Concomitant]
     Dates: start: 20130806, end: 20130812
  18. FERROUS FUMARATE [Concomitant]
     Indication: IRON DEFICIENCY
     Dates: start: 20130812, end: 20130902
  19. POTASSIUM BICARBONATE [Concomitant]
     Indication: HYPOPHOSPHATAEMIA
     Dates: start: 20130817, end: 20130903
  20. SODIUM BICARBONATE [Concomitant]
     Indication: HYPOPHOSPHATAEMIA
     Dates: start: 20130817, end: 20130903
  21. SODIUM PHOSPHATE MONOBASIC [Concomitant]
     Indication: HYPOPHOSPHATAEMIA
     Dates: start: 20130817, end: 20130903
  22. BENZYDAMINE HYDROCHLORIDE [Concomitant]
     Indication: ORAL PAIN
     Dates: start: 20130819
  23. CASPOFUNGIN [Concomitant]
     Indication: ENDOCARDITIS BACTERIAL
     Dates: start: 20130820, end: 20130826
  24. DEXAMETHASONE PHOSPHATE [Concomitant]
     Dates: start: 20130822, end: 20130823
  25. HYOSCINE [Concomitant]
     Route: 062
     Dates: start: 20130825
  26. GLYCOPYRRONIUM BROMIDE [Concomitant]
     Dates: start: 20130822, end: 20130822
  27. CHLORPHENAMINE MALEATE [Concomitant]
     Indication: RASH
     Dates: start: 20130827
  28. CARBOCISTEINE [Concomitant]
     Dates: start: 20130828
  29. VORICONAZOLE [Concomitant]
     Indication: ENDOCARDITIS BACTERIAL
     Dates: start: 20130828, end: 20130831

REACTIONS (9)
  - Drug eruption [Recovered/Resolved]
  - Rash erythematous [Recovered/Resolved]
  - Rash maculo-papular [Recovered/Resolved]
  - Petechiae [Recovered/Resolved]
  - Unresponsive to stimuli [Unknown]
  - Tremor [Unknown]
  - Emotional distress [Unknown]
  - Skin lesion [Recovered/Resolved]
  - Blister [Recovered/Resolved]
